FAERS Safety Report 20297733 (Version 3)
Quarter: 2022Q1

REPORT INFORMATION
  Report Type: Spontaneous
  Country: US (occurrence: US)
  Receive Date: 20220105
  Receipt Date: 20220207
  Transmission Date: 20220423
  Serious: Yes (Other)
  Sender: FDA-Public Use
  Company Number: US-AMGEN-USASP2021205937

PATIENT
  Age: 71 Year
  Sex: Female
  Weight: 63 kg

DRUGS (6)
  1. PROLIA [Suspect]
     Active Substance: DENOSUMAB
     Indication: Osteoporosis postmenopausal
     Dosage: 60 MILLIGRAM, Q6MO
     Route: 058
     Dates: start: 20210624
  2. FOSAMAX [Concomitant]
     Active Substance: ALENDRONATE SODIUM
     Indication: Product used for unknown indication
  3. FOSAMAX [Concomitant]
     Active Substance: ALENDRONATE SODIUM
     Route: 065
  4. ACTONEL [Concomitant]
     Active Substance: RISEDRONATE SODIUM
     Indication: Product used for unknown indication
  5. ACTONEL [Concomitant]
     Active Substance: RISEDRONATE SODIUM
     Route: 065
  6. EVISTA [Concomitant]
     Active Substance: RALOXIFENE HYDROCHLORIDE
     Dosage: UNK
     Dates: end: 20220124

REACTIONS (13)
  - Multiple fractures [Unknown]
  - Flank pain [Unknown]
  - Dehydration [Unknown]
  - Heat exhaustion [Unknown]
  - Tinnitus [Not Recovered/Not Resolved]
  - Skin disorder [Unknown]
  - Rash macular [Unknown]
  - Blood urea increased [Unknown]
  - Blood urea nitrogen/creatinine ratio increased [Unknown]
  - Sinus congestion [Unknown]
  - Dysphonia [Unknown]
  - Dizziness [Unknown]
  - Pruritus [Unknown]

NARRATIVE: CASE EVENT DATE: 20210101
